FAERS Safety Report 7991279-8 (Version None)
Quarter: 2011Q4

REPORT INFORMATION
  Report Type: 
  Country: None (occurrence: None)
  Receive Date: 20111219
  Receipt Date: 20111207
  Transmission Date: 20120403
  Serious: Yes (Disabling)
  Sender: FDA-Public Use
  Company Number: CA-MERCK-1009USA01200

PATIENT
  Age: 67 Year
  Sex: Male
  Weight: 64 kg

DRUGS (8)
  1. FORTEO [Concomitant]
     Route: 065
  2. CORTISONE [Concomitant]
     Route: 065
  3. IMURAN [Concomitant]
     Route: 065
  4. FLOMAX [Concomitant]
     Route: 065
  5. SODIUM FLUORIDE [Suspect]
     Route: 065
     Dates: start: 19910528, end: 19950713
  6. FOSAMAX [Suspect]
     Indication: OSTEOPOROSIS
     Route: 048
     Dates: start: 19970709, end: 20020731
  7. CALCIUM CARBONATE AND ETIDRONATE SODIUM [Concomitant]
     Dosage: 14 DAYS EVERY 3 MONTHS
     Route: 065
     Dates: start: 19950801, end: 19970630
  8. FOSAMAX [Suspect]
     Route: 048
     Dates: start: 20020801, end: 20100601

REACTIONS (3)
  - FEMUR FRACTURE [None]
  - DRUG INEFFECTIVE [None]
  - FRACTURE [None]
